FAERS Safety Report 6789424-5 (Version None)
Quarter: 2010Q2

REPORT INFORMATION
  Report Type: 
  Country: None (occurrence: None)
  Receive Date: 20100623
  Receipt Date: 20090923
  Transmission Date: 20101027
  Serious: Yes (Death, Hospitalization, Other)
  Sender: FDA-Public Use
  Company Number: DE-PFIZER INC-2008039686

PATIENT
  Sex: Male

DRUGS (13)
  1. DAYPRO [Suspect]
     Indication: OSTEOARTHRITIS
     Dosage: 1200 MG, UNK
     Route: 048
     Dates: start: 20070515, end: 20070528
  2. RIVAROXABAN [Suspect]
     Indication: THROMBOSIS PROPHYLAXIS
     Dosage: 10 MG, 1X/DAY
     Route: 048
     Dates: start: 20070523, end: 20070528
  3. ALEVE (CAPLET) [Suspect]
     Indication: OSTEOARTHRITIS
     Dosage: UNK
     Route: 048
     Dates: start: 20070515, end: 20070528
  4. GOODYS POWDERS [Suspect]
     Indication: OSTEOARTHRITIS
     Dosage: UNK
     Dates: start: 20070515, end: 20070528
  5. COREG [Concomitant]
     Indication: HYPERTENSION
     Dosage: 50 MG, UNK
     Route: 048
     Dates: start: 20060101
  6. LASIX [Concomitant]
     Indication: FLUID RETENTION
     Dosage: 120 MG, UNK
     Route: 048
     Dates: start: 20040101
  7. POTASSIUM CHLORIDE [Concomitant]
     Indication: BLOOD POTASSIUM DECREASED
     Dosage: 30 MG, UNK
     Route: 048
     Dates: start: 20040101
  8. POTASSIUM CHLORIDE [Concomitant]
     Indication: MINERAL SUPPLEMENTATION
  9. POTASSIUM CHLORIDE [Concomitant]
     Indication: PROPHYLAXIS
  10. ROBAXIN [Concomitant]
     Indication: MUSCLE RELAXANT THERAPY
     Dosage: 1500 MG, UNK
     Route: 048
     Dates: start: 20061201
  11. ROBAXIN [Concomitant]
     Indication: MUSCLE SPASMS
  12. ELAVIL [Concomitant]
     Indication: INSOMNIA
     Dosage: 100 MG, UNK
     Route: 048
     Dates: start: 20060101
  13. LISINOPRIL [Concomitant]
     Indication: HYPERTENSION
     Dosage: 20 MG, UNK
     Route: 048
     Dates: start: 20070201

REACTIONS (1)
  - GASTROINTESTINAL HAEMORRHAGE [None]
